FAERS Safety Report 22048798 (Version 2)
Quarter: 2023Q1

REPORT INFORMATION
  Report Type: Spontaneous
  Country: US (occurrence: US)
  Receive Date: 20230301
  Receipt Date: 20230303
  Transmission Date: 20230418
  Serious: Yes (Death, Other)
  Sender: FDA-Public Use
  Company Number: US-002147023-NVSC2023US046514

PATIENT
  Age: 65 Year
  Sex: Female
  Weight: 44 kg

DRUGS (3)
  1. KYMRIAH [Suspect]
     Active Substance: TISAGENLECLEUCEL
     Indication: Diffuse large B-cell lymphoma refractory
     Dosage: UNK, ONCE/SINGLE (3.8E8 CAR-POSITIVE VIABLE T-CELLS)
     Route: 042
     Dates: start: 20230206, end: 20230206
  2. KYMRIAH [Suspect]
     Active Substance: TISAGENLECLEUCEL
     Dosage: UNK, ONCE/SINGLE
     Route: 042
     Dates: start: 20230208
  3. KYMRIAH [Suspect]
     Active Substance: TISAGENLECLEUCEL
     Dosage: UNK, ONCE/SINGLE
     Route: 042
     Dates: start: 20230210

REACTIONS (8)
  - Diffuse large B-cell lymphoma stage IV [Fatal]
  - Diffuse large B-cell lymphoma refractory [Fatal]
  - Malignant neoplasm progression [Fatal]
  - Respiratory failure [Unknown]
  - Cytokine release syndrome [Unknown]
  - Immune effector cell-associated neurotoxicity syndrome [Unknown]
  - Cardiac arrest [Unknown]
  - Off label use [Unknown]

NARRATIVE: CASE EVENT DATE: 20230206
